FAERS Safety Report 8251282 (Version 2)
Quarter: 2012Q4

REPORT INFORMATION
  Report Type: 
  Country: US (occurrence: US)
  Receive Date: 20111117
  Receipt Date: 20121023
  Transmission Date: 20130627
  Serious: Yes (Other)
  Sender: FDA-Public Use
  Company Number: US-AMGEN-USASP2011006799

PATIENT
  Age: 63 Year
  Sex: Female

DRUGS (3)
  1. ENBREL [Suspect]
     Indication: RHEUMATOID ARTHRITIS
     Dosage: 25 mg, 2 times/wk
     Dates: start: 20050101
  2. IBUPROFEN [Concomitant]
     Dosage: UNK
  3. TRAMADOL [Concomitant]
     Dosage: UNK

REACTIONS (8)
  - Convulsion [Unknown]
  - Adverse drug reaction [Unknown]
  - Dysgeusia [Unknown]
  - Animal bite [Unknown]
  - Poisoning [Unknown]
  - Bronchitis [Unknown]
  - Infection [Unknown]
  - Drug ineffective [Unknown]
